FAERS Safety Report 21882550 (Version 1)
Quarter: 2023Q1

REPORT INFORMATION
  Report Type: Report from Study
  Country: US (occurrence: US)
  Receive Date: 20230119
  Receipt Date: 20230119
  Transmission Date: 20230418
  Serious: Yes (Other)
  Sender: FDA-Public Use
  Company Number: US-Accord-272861

PATIENT
  Sex: Female
  Weight: 102.51 kg

DRUGS (1)
  1. CLOZAPINE [Suspect]
     Active Substance: CLOZAPINE
     Indication: Schizoaffective disorder
     Dosage: 100MG AT  BED TIME, TAPERED TO 50MG AT BED TIME / BY MOUTH / DAILY
     Dates: end: 20220729

REACTIONS (1)
  - Neutropenia [Unknown]
